FAERS Safety Report 8605332-9 (Version None)
Quarter: 2012Q3

REPORT INFORMATION
  Report Type: 
  Country: None (occurrence: None)
  Receive Date: 20120820
  Receipt Date: 20120810
  Transmission Date: 20120928
  Serious: Yes (Hospitalization, Other)
  Sender: FDA-Public Use
  Company Number: US-ABBOTT-12P-163-0967675-00

PATIENT
  Age: 77 Year
  Sex: Female

DRUGS (12)
  1. OMEPRAZOLE [Concomitant]
     Indication: GASTROOESOPHAGEAL REFLUX DISEASE
     Dosage: EVERY DAY
  2. ASPIRIN [Concomitant]
     Indication: ATRIAL FIBRILLATION
     Dosage: DAILY
  3. TYLENOL PM [Concomitant]
     Indication: INSOMNIA
     Dosage: EVERY NIGHT
  4. SYNTHROID [Concomitant]
     Indication: PRODUCT USED FOR UNKNOWN INDICATION
     Dosage: DAILY
  5. FOLIC ACID [Concomitant]
     Indication: ATRIAL FIBRILLATION
     Dosage: DAILY
  6. POTASSIUM [Concomitant]
  7. HUMIRA [Suspect]
     Indication: CROHN'S DISEASE
     Dosage: STARTER KIT
     Dates: start: 20111227
  8. HUMIRA [Suspect]
     Dates: start: 20120614
  9. VITAMIN B-12 [Concomitant]
     Indication: VITAMIN B12 DEFICIENCY
     Dosage: MONTHLY
     Route: 050
  10. LANOXIN [Concomitant]
     Indication: ATRIAL FIBRILLATION
  11. CALCIUM +VIT D [Concomitant]
     Indication: PRODUCT USED FOR UNKNOWN INDICATION
     Dosage: EVERY DAY
  12. POTASSIUM [Concomitant]
     Indication: MINERAL SUPPLEMENTATION
     Dosage: DAILY

REACTIONS (6)
  - HAEMATOCHEZIA [None]
  - ANAEMIA [None]
  - COLONIC OBSTRUCTION [None]
  - SYNCOPE [None]
  - INJECTION SITE PAIN [None]
  - VOMITING [None]
